FAERS Safety Report 13538958 (Version 1)
Quarter: 2017Q2

REPORT INFORMATION
  Report Type: Spontaneous
  Country: US (occurrence: US)
  Receive Date: 20170511
  Receipt Date: 20170511
  Transmission Date: 20170830
  Serious: No
  Sender: FDA-Public Use
  Company Number: None

PATIENT
  Age: 22 Year
  Sex: Female

DRUGS (1)
  1. SUBOXONE [Suspect]
     Active Substance: BUPRENORPHINE HYDROCHLORIDE\NALOXONE HYDROCHLORIDE
     Indication: DRUG USE DISORDER
     Dosage: DOSE - 8/2MG 1/2 TAB
     Route: 060
     Dates: start: 20170313, end: 20170321

REACTIONS (6)
  - Hyperhidrosis [None]
  - Diarrhoea [None]
  - Nausea [None]
  - Withdrawal syndrome [None]
  - Myalgia [None]
  - Drug use disorder [None]

NARRATIVE: CASE EVENT DATE: 20170313
